FAERS Safety Report 15505152 (Version 1)
Quarter: 2018Q4

REPORT INFORMATION
  Report Type: Spontaneous
  Country: US (occurrence: US)
  Receive Date: 20181016
  Receipt Date: 20181016
  Transmission Date: 20190205
  Serious: Yes (Other)
  Sender: FDA-Public Use
  Company Number: US-AMGEN-USASP2018141419

PATIENT
  Age: 63 Year
  Sex: Female

DRUGS (3)
  1. FASLODEX [Concomitant]
     Active Substance: FULVESTRANT
  2. IBRANCE [Concomitant]
     Active Substance: PALBOCICLIB
  3. XGEVA [Suspect]
     Active Substance: DENOSUMAB
     Indication: BREAST CANCER METASTATIC
     Dosage: UNK, QMO
     Route: 065
     Dates: start: 201708, end: 201807

REACTIONS (2)
  - Oral infection [Unknown]
  - Osteonecrosis of jaw [Unknown]
